FAERS Safety Report 5734028-6 (Version None)
Quarter: 2008Q2

REPORT INFORMATION
  Report Type: 
  Country: None (occurrence: None)
  Receive Date: 20080509
  Receipt Date: 20080429
  Transmission Date: 20081010
  Serious: Yes (Other)
  Sender: FDA-Public Use
  Company Number: DE-PFIZER INC-2008037937

PATIENT
  Sex: Female

DRUGS (3)
  1. LONOLOX [Suspect]
     Route: 048
     Dates: start: 20080401, end: 20080428
  2. DIURETICS [Concomitant]
     Route: 048
  3. ANTIHYPERTENSIVES [Concomitant]
     Route: 048

REACTIONS (1)
  - RENAL IMPAIRMENT [None]
